FAERS Safety Report 12276626 (Version 1)
Quarter: 2016Q2

REPORT INFORMATION
  Report Type: Spontaneous
  Country: IT (occurrence: IT)
  Receive Date: 20160418
  Receipt Date: 20160418
  Transmission Date: 20160815
  Serious: Yes (Other)
  Sender: FDA-Public Use
  Company Number: IT-GLAXOSMITHKLINE-IT2016050963

PATIENT
  Sex: Female

DRUGS (1)
  1. CEFUROXIME. [Suspect]
     Active Substance: CEFUROXIME
     Indication: PRODUCT USED FOR UNKNOWN INDICATION

REACTIONS (3)
  - Angioedema [Unknown]
  - Urticaria [Unknown]
  - Laryngeal oedema [Unknown]
